FAERS Safety Report 9400147 (Version 1)
Quarter: 2013Q3

REPORT INFORMATION
  Report Type: Spontaneous
  Country: US (occurrence: US)
  Receive Date: 20130715
  Receipt Date: 20130715
  Transmission Date: 20140515
  Serious: Yes (Other)
  Sender: FDA-Public Use
  Company Number: US-ASTRAZENECA-2013SE51096

PATIENT
  Sex: Female

DRUGS (3)
  1. NEXIUM [Suspect]
     Route: 048
  2. SKELAXIN [Concomitant]
  3. OTHER MEDICATIONS [Concomitant]

REACTIONS (5)
  - Road traffic accident [Unknown]
  - Hernia [Unknown]
  - Dyspepsia [Unknown]
  - Eructation [Unknown]
  - Dysgeusia [Unknown]
